FAERS Safety Report 11198515 (Version 1)
Quarter: 2015Q2

REPORT INFORMATION
  Report Type: Spontaneous
  Country: IT (occurrence: IT)
  Receive Date: 20150618
  Receipt Date: 20150618
  Transmission Date: 20150821
  Serious: Yes (Hospitalization)
  Sender: FDA-Public Use
  Company Number: IT-HOSPIRA-2698272

PATIENT
  Age: 77 Year
  Sex: Female

DRUGS (1)
  1. OXALIPLATIN. [Suspect]
     Active Substance: OXALIPLATIN
     Indication: COLON CANCER
     Route: 042
     Dates: start: 20120301, end: 20120301

REACTIONS (2)
  - Asthenia [Recovered/Resolved with Sequelae]
  - Throat tightness [Recovered/Resolved with Sequelae]

NARRATIVE: CASE EVENT DATE: 20120301
